FAERS Safety Report 22210097 (Version 1)
Quarter: 2023Q2

REPORT INFORMATION
  Report Type: Spontaneous
  Country: JP (occurrence: JP)
  Receive Date: 20230414
  Receipt Date: 20230414
  Transmission Date: 20230722
  Serious: Yes (Other)
  Sender: FDA-Public Use
  Company Number: JP-SA-SAC20230411001093

PATIENT
  Age: 61 Year
  Sex: Male

DRUGS (1)
  1. OXALIPLATIN [Suspect]
     Active Substance: OXALIPLATIN
     Indication: Product used for unknown indication
     Dosage: INJECTION, FOLFOX6??
     Route: 042

REACTIONS (3)
  - Cholangitis [Recovering/Resolving]
  - Diabetes mellitus [Unknown]
  - Cholelithiasis [Recovering/Resolving]
